FAERS Safety Report 25918921 (Version 1)
Quarter: 2025Q4

REPORT INFORMATION
  Report Type: Spontaneous
  Country: US (occurrence: US)
  Receive Date: 20251014
  Receipt Date: 20251014
  Transmission Date: 20260117
  Serious: No
  Sender: KALVISTA PHARMACEUTICALS
  Company Number: US-KP-00060

PATIENT
  Age: 67 Year
  Sex: Female
  Weight: 71.668 kg

DRUGS (9)
  1. EKTERLY [Suspect]
     Active Substance: SEBETRALSTAT
     Indication: Hereditary angioedema
     Dosage: TIME INTERVAL: AS NECESSARY
     Route: 048
     Dates: start: 20250820
  2. ANDEMBRY [Concomitant]
     Active Substance: GARADACIMAB-GXII
  3. FAMOTIDINE [Concomitant]
     Active Substance: FAMOTIDINE
  4. BENADRYL [Concomitant]
     Active Substance: DIPHENHYDRAMINE HYDROCHLORIDE
  5. VITAMIN D3-VITAMIN K2 [Concomitant]
  6. CALCIUM CARBONATE\CHOLECALCIFEROL [Concomitant]
     Active Substance: CALCIUM CARBONATE\CHOLECALCIFEROL
  7. VITAMINS [Concomitant]
     Active Substance: VITAMINS
  8. TYMLOS [Concomitant]
     Active Substance: ABALOPARATIDE
  9. PREDNISONE [Concomitant]
     Active Substance: PREDNISONE

REACTIONS (8)
  - Drug ineffective [Unknown]
  - Dysphonia [Unknown]
  - General physical health deterioration [Unknown]
  - Headache [Unknown]
  - Dyspnoea [Unknown]
  - Arthralgia [Unknown]
  - Insomnia [Unknown]
  - Abdominal pain upper [Unknown]

NARRATIVE: CASE EVENT DATE: 20250828
